FAERS Safety Report 18529390 (Version 1)
Quarter: 2020Q4

REPORT INFORMATION
  Report Type: Spontaneous
  Country: JP (occurrence: JP)
  Receive Date: 20201120
  Receipt Date: 20201120
  Transmission Date: 20210114
  Serious: Yes (Hospitalization)
  Sender: FDA-Public Use
  Company Number: JP-ALLERGAN-1827611US

PATIENT
  Sex: Male

DRUGS (1)
  1. BOTOX [Suspect]
     Active Substance: ONABOTULINUMTOXINA
     Indication: TORTICOLLIS
     Dosage: UNK, SINGLE
     Route: 030
     Dates: start: 2018, end: 2018

REACTIONS (4)
  - Headache [Not Recovered/Not Resolved]
  - Injection site swelling [Not Recovered/Not Resolved]
  - Muscle atrophy [Unknown]
  - Hypoaesthesia [Not Recovered/Not Resolved]
